FAERS Safety Report 23729502 (Version 1)
Quarter: 2024Q2

REPORT INFORMATION
  Report Type: Spontaneous
  Country: US (occurrence: US)
  Receive Date: 20240410
  Receipt Date: 20240410
  Transmission Date: 20240715
  Serious: No
  Sender: FDA-Public Use
  Company Number: US-009507513-2403USA008741

PATIENT
  Age: 1 Year
  Sex: Female

DRUGS (3)
  1. PROQUAD [Suspect]
     Active Substance: MEASLES VIRUS STRAIN ENDERS^ ATTENUATED EDMONSTON LIVE ANTIGEN\MUMPS VIRUS STRAIN B LEVEL JERYL LYNN
     Indication: Prophylaxis
     Route: 058
     Dates: start: 20240325
  2. STERILE DILUENT (WATER) [Suspect]
     Active Substance: WATER
     Indication: Prophylaxis
     Dosage: 1 DOSE
     Route: 058
     Dates: start: 20240325, end: 20240325
  3. HAEMOPHILUS B CONJUGATE VACCINE NOS [Suspect]
     Active Substance: HAEMOPHILUS B CONJUGATE VACCINE
     Dosage: UNK
     Route: 030
     Dates: start: 20240325

REACTIONS (2)
  - Urticaria [Recovered/Resolved]
  - Vomiting [Recovered/Resolved]

NARRATIVE: CASE EVENT DATE: 20240325
